FAERS Safety Report 9198780 (Version 1)
Quarter: 2013Q1

REPORT INFORMATION
  Report Type: Spontaneous
  Country: FR (occurrence: FR)
  Receive Date: 20130329
  Receipt Date: 20130329
  Transmission Date: 20140127
  Serious: Yes (Hospitalization)
  Sender: FDA-Public Use
  Company Number: FR-PFIZER INC-2013094047

PATIENT
  Age: 30 Year
  Sex: Female

DRUGS (1)
  1. RHINADVIL [Suspect]
     Indication: BACK PAIN
     Dosage: UNK
     Route: 048
     Dates: start: 20120715, end: 20120719

REACTIONS (3)
  - Hepatocellular injury [Unknown]
  - Cholestasis [Unknown]
  - Transaminases increased [Unknown]
